FAERS Safety Report 17243819 (Version 1)
Quarter: 2020Q1

REPORT INFORMATION
  Report Type: Spontaneous
  Country: US (occurrence: US)
  Receive Date: 20200107
  Receipt Date: 20200107
  Transmission Date: 20200409
  Serious: Yes (Hospitalization)
  Sender: FDA-Public Use
  Company Number: US-ROCHE-2422690

PATIENT
  Age: 56 Year
  Sex: Female
  Weight: 88.4 kg

DRUGS (10)
  1. LISINOPRIL. [Concomitant]
     Active Substance: LISINOPRIL
  2. MICROZIDE [HYDROCHLOROTHIAZIDE] [Concomitant]
  3. VENTOLIN [Concomitant]
     Active Substance: ALBUTEROL SULFATE
  4. FLEXERIL [Concomitant]
     Active Substance: CYCLOBENZAPRINE HYDROCHLORIDE
  5. CLARITIN [Concomitant]
     Active Substance: LORATADINE
  6. SINGULAIR [Concomitant]
     Active Substance: MONTELUKAST SODIUM
  7. ASA [Concomitant]
     Active Substance: ASPIRIN
  8. FLONASE [Concomitant]
     Active Substance: FLUTICASONE PROPIONATE
  9. ACTIVASE [Suspect]
     Active Substance: ALTEPLASE
     Indication: CEREBROVASCULAR ACCIDENT
     Dosage: ONE TIME DOSE, BOLUS GIVEN OVER 1 MINUTE 7.65 MG AT 0953 FOLLOWED BY INFUSION OVER 1?HOUR AT 0957 69
     Route: 042
     Dates: start: 20190417, end: 20190417
  10. ISOVUE 370 [Concomitant]
     Active Substance: IOPAMIDOL
     Route: 042
     Dates: start: 20190417

REACTIONS (1)
  - Urticaria [Recovering/Resolving]
